FAERS Safety Report 8363348-4 (Version None)
Quarter: 2012Q2

REPORT INFORMATION
  Report Type: 
  Country: None (occurrence: None)
  Receive Date: 20120514
  Receipt Date: 20120427
  Transmission Date: 20120825
  Serious: Yes (Hospitalization)
  Sender: FDA-Public Use
  Company Number: DSA_56439_2012

PATIENT
  Age: 60 Year
  Sex: Male

DRUGS (7)
  1. METRONIDAZOLE [Suspect]
     Indication: PANCREATITIS
     Dosage: (500 MG 3X K2 (1.5 G 3X INTRAVENOUS (NOT OTHERWISE SPECIFIED)), (DF)
     Route: 042
     Dates: start: 20070201, end: 20070201
  2. CEFUROXIME [Suspect]
     Indication: PANCREATITIS
     Dosage: (1.5  INTRAVENOUS (NOT OTHERWISE SPECIFIED)), (1.5 G 3X INTRAVENOUS (NOT OTHERWISE SPECIFIED))
     Route: 042
     Dates: start: 20070201, end: 20070201
  3. GENTAMICIN [Suspect]
     Indication: PANCREATITIS
     Dosage: 240 MG 1X INTRAVENOUS (NOT OTHERWISE SPECIFIED)), (DF)
     Route: 042
     Dates: start: 20070201, end: 20070201
  4. GENTAMICIN [Suspect]
     Indication: PANCREATITIS
     Dosage: 240 MG 1X INTRAVENOUS (NOT OTHERWISE SPECIFIED)), (DF)
     Route: 042
     Dates: start: 20070101
  5. PENICILLIN [Suspect]
     Indication: PANCREATITIS
     Dosage: SEE IMAGE
     Route: 042
     Dates: start: 20070201, end: 20070201
  6. PENICILLIN [Suspect]
     Indication: PANCREATITIS
     Dosage: SEE IMAGE
     Route: 042
     Dates: start: 20070101
  7. PENICILLIN [Suspect]
     Indication: PANCREATITIS
     Dosage: SEE IMAGE
     Route: 042

REACTIONS (15)
  - BLOOD CULTURE POSITIVE [None]
  - BONE ABSCESS [None]
  - STAPHYLOCOCCAL INFECTION [None]
  - OSTEONECROSIS [None]
  - STREPTOCOCCAL INFECTION [None]
  - CULTURE TISSUE SPECIMEN POSITIVE [None]
  - AMPUTATION [None]
  - CANDIDA OSTEOMYELITIS [None]
  - ARTHRALGIA [None]
  - BONE EROSION [None]
  - LEUKOCYTOCLASTIC VASCULITIS [None]
  - SOFT TISSUE NECROSIS [None]
  - OSTEOMYELITIS BACTERIAL [None]
  - PANCREATIC CYST [None]
  - ARTHRITIS BACTERIAL [None]
